FAERS Safety Report 8461137-3 (Version None)
Quarter: 2012Q2

REPORT INFORMATION
  Report Type: 
  Country: None (occurrence: None)
  Receive Date: 20120625
  Receipt Date: 20120620
  Transmission Date: 20120825
  Serious: No
  Sender: FDA-Public Use
  Company Number: US-PFIZER INC-2012149218

PATIENT
  Sex: Female
  Weight: 100 kg

DRUGS (3)
  1. MORPHINE SULFATE [Suspect]
     Dosage: UNK
  2. CODEINE SULFATE [Suspect]
     Dosage: UNK
  3. DEMEROL [Suspect]
     Indication: PAIN
     Dosage: 50 MG (1 TABLET EVERY 8 HOURS), AS NEEDED
     Route: 048

REACTIONS (4)
  - URTICARIA [None]
  - VOMITING [None]
  - DRUG HYPERSENSITIVITY [None]
  - NAUSEA [None]
